FAERS Safety Report 9486527 (Version 4)
Quarter: 2014Q2

REPORT INFORMATION
  Report Type: Spontaneous
  Country: US (occurrence: US)
  Receive Date: 20130829
  Receipt Date: 20140424
  Transmission Date: 20141212
  Serious: Yes (Hospitalization, Other)
  Sender: FDA-Public Use
  Company Number: US-SANOFI-AVENTIS-2013SA085715

PATIENT
  Age: 40 Year
  Sex: Male

DRUGS (6)
  1. AUBAGIO [Suspect]
     Indication: MULTIPLE SCLEROSIS
     Route: 048
     Dates: start: 20130515
  2. AUBAGIO [Suspect]
     Indication: MULTIPLE SCLEROSIS
     Route: 048
     Dates: start: 2014
  3. DIAZEPAM [Concomitant]
  4. MARINOL [Concomitant]
  5. CANNABIS [Concomitant]
  6. MERINAL [Concomitant]

REACTIONS (5)
  - Weight increased [Unknown]
  - Abdominal distension [Unknown]
  - Diarrhoea [Unknown]
  - Cholecystectomy [Unknown]
  - Blister [Unknown]
